FAERS Safety Report 9502477 (Version 2)
Quarter: 2013Q3

REPORT INFORMATION
  Report Type: Spontaneous
  Country: CN (occurrence: CN)
  Receive Date: 20130906
  Receipt Date: 20130906
  Transmission Date: 20140515
  Serious: Yes (Death, Life-Threatening, Hospitalization)
  Sender: FDA-Public Use
  Company Number: CN-JNJFOC-20120408988

PATIENT
  Age: 25 Year
  Sex: Male

DRUGS (5)
  1. IBUPROFEN [Suspect]
     Indication: PRODUCT USED FOR UNKNOWN INDICATION
     Dosage: TOOK A TOTAL OF 3 ^PIECES^
     Route: 048
     Dates: start: 201204, end: 201204
  2. TYLENOL COLD [Suspect]
     Indication: HEADACHE
     Dosage: TOOK A TOTAL OF 6 TABLETS
     Route: 048
     Dates: start: 201204, end: 201204
  3. TYLENOL COLD [Suspect]
     Indication: FATIGUE
     Dosage: TOOK A TOTAL OF 6 TABLETS
     Route: 048
     Dates: start: 201204, end: 201204
  4. TYLENOL COLD [Suspect]
     Indication: ABDOMINAL DISTENSION
     Dosage: TOOK A TOTAL OF 6 TABLETS
     Route: 048
     Dates: start: 201204, end: 201204
  5. TYLENOL COLD [Suspect]
     Indication: NASOPHARYNGITIS
     Dosage: TOOK A TOTAL OF 6 TABLETS
     Route: 048
     Dates: start: 201204, end: 201204

REACTIONS (5)
  - Toxicity to various agents [Fatal]
  - Hepatic failure [Fatal]
  - Hepatorenal syndrome [Unknown]
  - Coma [Recovered/Resolved]
  - Lung infection [Fatal]
